FAERS Safety Report 8214809-X (Version None)
Quarter: 2012Q1

REPORT INFORMATION
  Report Type: 
  Country: None (occurrence: None)
  Receive Date: 20120316
  Receipt Date: 20120305
  Transmission Date: 20120608
  Serious: Yes (Hospitalization)
  Sender: FDA-Public Use
  Company Number: US-JNJFOC-20120207493

PATIENT
  Sex: Female
  Weight: 45 kg

DRUGS (2)
  1. REMICADE [Suspect]
     Indication: CROHN'S DISEASE
     Route: 042
     Dates: start: 20120103
  2. IMURAN [Concomitant]

REACTIONS (3)
  - SMALL INTESTINAL OBSTRUCTION [None]
  - PANCREATITIS ACUTE [None]
  - GASTROINTESTINAL FISTULA [None]
